FAERS Safety Report 4385863-0 (Version None)
Quarter: 2004Q2

REPORT INFORMATION
  Report Type: 
  Country: None (occurrence: None)
  Receive Date: 20040621
  Receipt Date: 20040609
  Transmission Date: 20050107
  Serious: Yes (Other)
  Sender: FDA-Public Use
  Company Number: 24230

PATIENT
  Sex: 0

DRUGS (1)
  1. ALDARA [Suspect]
     Indication: METASTATIC MALIGNANT MELANOMA
     Dosage: 8 WEEK(S), TOPICAL
     Route: 061

REACTIONS (3)
  - APPLICATION SITE INFLAMMATION [None]
  - MALIGNANT NEOPLASM PROGRESSION [None]
  - METASTATIC MALIGNANT MELANOMA [None]
